FAERS Safety Report 19513603 (Version 2)
Quarter: 2021Q3

REPORT INFORMATION
  Report Type: Spontaneous
  Country: US (occurrence: US)
  Receive Date: 20210709
  Receipt Date: 20210802
  Transmission Date: 20211014
  Serious: Yes (Other)
  Sender: FDA-Public Use
  Company Number: US-BAYER-2021-167744

PATIENT
  Age: 28 Year
  Sex: Male

DRUGS (6)
  1. KOGENATE FS [Suspect]
     Active Substance: ANTIHEMOPHILIC FACTOR, HUMAN RECOMBINANT
     Dosage: 4875 U
     Route: 042
  2. KOGENATE FS [Suspect]
     Active Substance: ANTIHEMOPHILIC FACTOR, HUMAN RECOMBINANT
     Dosage: USED ALL 5 DOSES FROM LAST ORDER, FOR LEFT UPPER ANKLE BLEED
     Dates: start: 202106
  3. KOGENATE FS [Suspect]
     Active Substance: ANTIHEMOPHILIC FACTOR, HUMAN RECOMBINANT
     Dosage: 2137 U; PROPHYLAXIS
     Route: 042
  4. KOGENATE FS [Suspect]
     Active Substance: ANTIHEMOPHILIC FACTOR, HUMAN RECOMBINANT
     Dosage: 3 DF, ONCE; TREATMENT FOR LEFT ANKLE HEMARTHROSIS
  5. KOGENATE FS [Suspect]
     Active Substance: ANTIHEMOPHILIC FACTOR, HUMAN RECOMBINANT
     Dosage: 4857 U, UNK
     Route: 042
  6. KOGENATE FS [Suspect]
     Active Substance: ANTIHEMOPHILIC FACTOR, HUMAN RECOMBINANT
     Dosage: 11 DF; INFUSED 11 DOSES SO FAR FOR LEFT ANKLE BLEED IN JUNE
     Route: 042
     Dates: start: 2021

REACTIONS (1)
  - Haemarthrosis [Not Recovered/Not Resolved]

NARRATIVE: CASE EVENT DATE: 20210625
